FAERS Safety Report 6339548-1 (Version None)
Quarter: 2009Q3

REPORT INFORMATION
  Report Type: 
  Country: None (occurrence: None)
  Receive Date: 20090903
  Receipt Date: 20090821
  Transmission Date: 20100115
  Serious: Yes (Hospitalization)
  Sender: FDA-Public Use
  Company Number: FR-JNJFOC-20090900422

PATIENT
  Sex: Female

DRUGS (9)
  1. IXPRIM [Suspect]
     Indication: PAIN
     Route: 048
     Dates: start: 20090420, end: 20090504
  2. CELEBREX [Suspect]
     Route: 048
  3. CELEBREX [Suspect]
     Indication: PAIN
     Route: 048
  4. MOPRAL [Suspect]
     Indication: PROPHYLAXIS AGAINST GASTROINTESTINAL ULCER
     Route: 048
  5. TETRAZEPAM [Suspect]
     Indication: PAIN
     Route: 048
  6. OROCAL D(3) [Concomitant]
  7. SALMETEROL XINAFOATE [Concomitant]
     Dosage: 2 PUFFS DAILY
  8. BECOTIDE [Concomitant]
     Dosage: 2 PUFFS DAILY
  9. IBANDRONIC ACID [Concomitant]

REACTIONS (7)
  - CHOLESTASIS [None]
  - EOSINOPHILIA [None]
  - HAEMATOMA [None]
  - LEUKOCYTOSIS [None]
  - PRURITUS [None]
  - RASH ERYTHEMATOUS [None]
  - RENAL FAILURE [None]
